FAERS Safety Report 23783325 (Version 2)
Quarter: 2024Q2

REPORT INFORMATION
  Report Type: Spontaneous
  Country: AT (occurrence: AT)
  Receive Date: 20240425
  Receipt Date: 20240501
  Transmission Date: 20240716
  Serious: Yes (Other)
  Sender: FDA-Public Use
  Company Number: AT-AMERICAN REGENT INC-2024001380

PATIENT
  Age: 63 Year
  Sex: Male

DRUGS (1)
  1. FERINJECT [Suspect]
     Active Substance: FERRIC CARBOXYMALTOSE
     Indication: Iron deficiency
     Dosage: UNK

REACTIONS (3)
  - Nephrolithiasis [Unknown]
  - Fibroblast growth factor 23 increased [Unknown]
  - Hypophosphataemia [Not Recovered/Not Resolved]
